FAERS Safety Report 9206841 (Version 1)
Quarter: 2013Q2

REPORT INFORMATION
  Report Type: Spontaneous
  Country: CH (occurrence: CH)
  Receive Date: 20130403
  Receipt Date: 20130403
  Transmission Date: 20140414
  Serious: Yes (Other)
  Sender: FDA-Public Use
  Company Number: CH-ELI_LILLY_AND_COMPANY-CH201302008691

PATIENT
  Age: 38 Year
  Sex: Female
  Weight: 72 kg

DRUGS (5)
  1. CYMBALTA [Suspect]
     Indication: DEPRESSION
     Dosage: 30 MG, QD
     Route: 048
     Dates: start: 20130211, end: 20130213
  2. CYMBALTA [Suspect]
     Dosage: 60 MG, QD
     Dates: start: 20130214, end: 20130224
  3. CIPRALEX [Concomitant]
     Indication: ANXIETY
     Dosage: 10 MG, QD
     Dates: start: 2002, end: 20130217
  4. LEVONORGESTREL [Concomitant]
     Indication: CONTRACEPTION
     Dosage: UNK
     Dates: start: 2010
  5. BEROCCA [Concomitant]
     Indication: ASTHENIA
     Dosage: 1 DF, QD
     Route: 048
     Dates: start: 20130211, end: 20130224

REACTIONS (1)
  - Angioedema [Recovered/Resolved]
